FAERS Safety Report 7513464-1 (Version None)
Quarter: 2011Q2

REPORT INFORMATION
  Report Type: 
  Country: None (occurrence: None)
  Receive Date: 20110531
  Receipt Date: 20110517
  Transmission Date: 20111010
  Serious: Yes (Hospitalization)
  Sender: FDA-Public Use
  Company Number: US-JNJFOC-20110508130

PATIENT
  Sex: Male
  Weight: 79.5 kg

DRUGS (5)
  1. ABIRATERONE ACETATE [Suspect]
     Route: 048
     Dates: start: 20110329
  2. PREDNISONE [Suspect]
     Route: 048
     Dates: start: 20110329
  3. ABIRATERONE ACETATE [Suspect]
     Route: 048
     Dates: start: 20110512
  4. PREDNISONE [Suspect]
     Indication: PROSTATE CANCER METASTATIC
     Route: 048
     Dates: start: 20110512
  5. ABIRATERONE ACETATE [Suspect]
     Indication: PROSTATE CANCER METASTATIC
     Route: 048
     Dates: end: 20110514

REACTIONS (1)
  - DEHYDRATION [None]
